FAERS Safety Report 7177264-7 (Version None)
Quarter: 2010Q4

REPORT INFORMATION
  Report Type: 
  Country: None (occurrence: None)
  Receive Date: 20101123
  Receipt Date: 20100803
  Transmission Date: 20110411
  Serious: No
  Sender: FDA-Public Use
  Company Number: 016727

PATIENT
  Sex: Female
  Weight: 70.3 kg

DRUGS (12)
  1. CIMZIA [Suspect]
     Indication: COLITIS ULCERATIVE
     Dosage: 200 MG 1X/2 WEEKS SUBCUTANEOUS
     Route: 058
     Dates: start: 20090801
  2. CIMZIA [Suspect]
     Indication: RHEUMATOID ARTHRITIS
     Dosage: 200 MG 1X/2 WEEKS SUBCUTANEOUS
     Route: 058
     Dates: start: 20090801
  3. METHOTREXATE [Concomitant]
  4. FOLIC ACID [Concomitant]
  5. LEVOTHYROXINE [Concomitant]
  6. NEXIUM /01479303/ [Concomitant]
  7. DIOVAN [Concomitant]
  8. METOPROLOL [Concomitant]
  9. EFFEXOR [Concomitant]
  10. LUNESTA [Concomitant]
  11. CYCLOBENZAPRINE [Concomitant]
  12. PREMPRO [Concomitant]

REACTIONS (7)
  - BURNING SENSATION [None]
  - HYPOAESTHESIA [None]
  - OFF LABEL USE [None]
  - PAIN IN EXTREMITY [None]
  - PARAESTHESIA [None]
  - PERIPHERAL COLDNESS [None]
  - SKIN DISCOLOURATION [None]
